FAERS Safety Report 12539764 (Version 2)
Quarter: 2016Q3

REPORT INFORMATION
  Report Type: Spontaneous
  Country: JP (occurrence: JP)
  Receive Date: 20160708
  Receipt Date: 20160728
  Transmission Date: 20161109
  Serious: Yes (Other)
  Sender: FDA-Public Use
  Company Number: JP-009507513-1606JPN014556

PATIENT
  Age: 60 Year
  Sex: Female

DRUGS (9)
  1. KLARICID [Concomitant]
     Active Substance: CLARITHROMYCIN
     Dosage: 200 MG/ DAY
     Route: 048
     Dates: start: 20090522, end: 20100910
  2. MUCODYNE [Concomitant]
     Active Substance: CARBOCYSTEINE
     Dosage: 1000 MG/ DAY
     Route: 048
     Dates: start: 20090130
  3. KIPRES [Suspect]
     Active Substance: MONTELUKAST SODIUM
     Indication: RHINITIS ALLERGIC
     Dosage: 10 MG, QD (1 TABLET, 10 MG/DAY)
     Route: 048
     Dates: start: 20090130, end: 20110419
  4. KIPRES [Suspect]
     Active Substance: MONTELUKAST SODIUM
     Indication: ASTHMA
  5. KIPRES [Suspect]
     Active Substance: MONTELUKAST SODIUM
     Indication: OTITIS MEDIA
  6. CLARITH [Concomitant]
     Active Substance: CLARITHROMYCIN
     Dosage: 50 MG/ DAY
     Route: 048
     Dates: start: 20100911
  7. EMPYNASE P [Concomitant]
     Active Substance: PROTEIN
     Dosage: 3 DF/ DAY
     Route: 048
     Dates: start: 20090901, end: 20160406
  8. TALION (BEPOTASTINE BESYLATE) [Concomitant]
     Active Substance: BEPOTASTINE
     Dosage: 20 MG/ DAY
     Route: 048
     Dates: start: 20100205, end: 20120306
  9. SKYRON [Concomitant]
     Dosage: 4 DF/ DAY
     Route: 045
     Dates: start: 20090130

REACTIONS (2)
  - Tympanic membrane perforation [Not Recovered/Not Resolved]
  - Nasal septum perforation [Not Recovered/Not Resolved]

NARRATIVE: CASE EVENT DATE: 20100219
